FAERS Safety Report 10096001 (Version 1)
Quarter: 2014Q2

REPORT INFORMATION
  Report Type: Spontaneous
  Country: US (occurrence: US)
  Receive Date: 20140422
  Receipt Date: 20140422
  Transmission Date: 20141212
  Serious: Yes (Disabling)
  Sender: FDA-Public Use
  Company Number: US-GLAXOSMITHKLINE-A1069635A

PATIENT
  Age: 41 Year
  Sex: Female

DRUGS (2)
  1. LAMICTAL [Suspect]
     Indication: DEPRESSION
     Dosage: 150MG PER DAY
     Route: 048
     Dates: start: 20140111, end: 201403
  2. NO CONCURRENT MEDICATION [Concomitant]

REACTIONS (6)
  - Somnolence [Recovered/Resolved]
  - Feeling abnormal [Recovered/Resolved]
  - Hangover [Recovered/Resolved]
  - Overdose [Recovered/Resolved]
  - Drug dispensing error [Unknown]
  - Depressed mood [Not Recovered/Not Resolved]
